FAERS Safety Report 7972645-3 (Version None)
Quarter: 2011Q4

REPORT INFORMATION
  Report Type: 
  Country: None (occurrence: None)
  Receive Date: 20111213
  Receipt Date: 20111208
  Transmission Date: 20120403
  Serious: Yes (Death, Hospitalization)
  Sender: FDA-Public Use
  Company Number: JP-JNJFOC-20091005408

PATIENT
  Sex: Female
  Weight: 98 kg

DRUGS (14)
  1. ASPIRIN [Concomitant]
     Route: 048
     Dates: start: 20070810
  2. ASPIRIN [Concomitant]
     Route: 048
     Dates: start: 20091022
  3. WARFARIN SODIUM [Concomitant]
     Route: 048
     Dates: start: 20070702
  4. PAXIL [Concomitant]
     Indication: PANIC DISORDER
     Route: 048
     Dates: start: 20060724
  5. LAMISIL [Concomitant]
     Indication: TINEA PEDIS
     Route: 048
     Dates: start: 20070507
  6. DOXORUBICIN HCL [Suspect]
     Dosage: CYCLE 3
     Route: 042
     Dates: start: 20090930, end: 20090930
  7. DOXORUBICIN HCL [Suspect]
     Dosage: CYCLE 2
     Route: 042
     Dates: start: 20090902, end: 20090902
  8. PLETAL [Concomitant]
     Route: 048
     Dates: start: 20091022
  9. PLETAL [Concomitant]
     Route: 048
     Dates: start: 20080205
  10. WARFARIN SODIUM [Concomitant]
     Indication: DEEP VEIN THROMBOSIS
     Route: 048
     Dates: start: 20091022
  11. DOXORUBICIN HCL [Suspect]
     Indication: OVARIAN CANCER RECURRENT
     Dosage: CYCLE 1
     Route: 042
     Dates: start: 20090729, end: 20090729
  12. DECADRON [Concomitant]
     Indication: PROPHYLAXIS
     Route: 042
     Dates: start: 20090729, end: 20090930
  13. PARAMIDIN [Concomitant]
     Route: 048
     Dates: start: 20090829
  14. GRANISETRON [Concomitant]
     Indication: PROPHYLAXIS
     Route: 042
     Dates: start: 20090729, end: 20090930

REACTIONS (5)
  - LYMPHOEDEMA [None]
  - PULMONARY EMBOLISM [None]
  - VENOUS THROMBOSIS LIMB [None]
  - OVARIAN CANCER RECURRENT [None]
  - PLEURAL EFFUSION [None]
